FAERS Safety Report 5246537-7 (Version None)
Quarter: 2007Q1

REPORT INFORMATION
  Report Type: 
  Country: None (occurrence: None)
  Receive Date: 20070226
  Receipt Date: 20070219
  Transmission Date: 20070707
  Serious: Yes (Hospitalization)
  Sender: FDA-Public Use
  Company Number: HQWYE360121FEB07

PATIENT
  Sex: Male
  Weight: 108 kg

DRUGS (6)
  1. SIROLIMUS [Suspect]
     Indication: PROPHYLAXIS AGAINST TRANSPLANT REJECTION
     Route: 048
     Dates: start: 20040521
  2. MYCOPHENOLATE MOFETIL [Concomitant]
     Indication: PROPHYLAXIS AGAINST TRANSPLANT REJECTION
     Dosage: 500 UNITS NOT PROVIDED/DAILY
     Route: 048
     Dates: start: 20020911
  3. TORSEMIDE [Concomitant]
     Indication: OEDEMA
     Route: 048
     Dates: start: 20041124
  4. VALSARTAN [Concomitant]
     Indication: HYPERTENSION
     Dosage: 60 UNITS NOT PROVIDED/DAILY
     Route: 048
     Dates: start: 20030521
  5. FLUOXETINE [Concomitant]
     Indication: DEPRESSION
     Route: 048
     Dates: start: 20020529
  6. GLIMEPIRIDE [Concomitant]
     Indication: DIABETES MELLITUS
     Route: 048
     Dates: start: 20041125

REACTIONS (1)
  - SKIN ULCER [None]
